FAERS Safety Report 8100459-2 (Version None)
Quarter: 2012Q1

REPORT INFORMATION
  Report Type: 
  Country: None (occurrence: None)
  Receive Date: 20120129
  Receipt Date: 20111101
  Transmission Date: 20120608
  Serious: No
  Sender: FDA-Public Use
  Company Number: US-ABBOTT-11P-163-0870389-00

PATIENT
  Age: 65 Year
  Sex: Female

DRUGS (7)
  1. HYDROCHLOROTHIAZIDE [Concomitant]
     Indication: HYPERTENSION
  2. HYDROCHLOROTHIAZIDE [Concomitant]
     Indication: OEDEMA PERIPHERAL
  3. BONIVA [Concomitant]
     Indication: PRODUCT USED FOR UNKNOWN INDICATION
  4. VITAMIN D [Concomitant]
     Indication: PRODUCT USED FOR UNKNOWN INDICATION
  5. IBUPROFEN (ADVIL) [Concomitant]
     Indication: PRODUCT USED FOR UNKNOWN INDICATION
  6. HUMIRA [Suspect]
     Indication: PSORIASIS
     Dates: start: 20110803
  7. FLU VACCINE [Concomitant]
     Indication: PRODUCT USED FOR UNKNOWN INDICATION
     Dates: start: 20111012

REACTIONS (2)
  - EYE PRURITUS [None]
  - PRURITUS [None]
